FAERS Safety Report 19315670 (Version 2)
Quarter: 2021Q3

REPORT INFORMATION
  Report Type: Spontaneous
  Country: US (occurrence: US)
  Receive Date: 20210528
  Receipt Date: 20210817
  Transmission Date: 20211014
  Serious: Yes (Hospitalization, Other)
  Sender: FDA-Public Use
  Company Number: US-SA-2021SA176307

PATIENT
  Age: 66 Year
  Sex: Female

DRUGS (34)
  1. FABRAZYME [Suspect]
     Active Substance: AGALSIDASE BETA
     Indication: FABRY^S DISEASE
     Dosage: 95 MG, QOW
     Route: 042
     Dates: start: 20180222
  2. NORMAL SALINE [Concomitant]
     Active Substance: SODIUM CHLORIDE
  3. CYMBALTA [Concomitant]
     Active Substance: DULOXETINE HYDROCHLORIDE
  4. DIPHENHYDRAMINE. [Concomitant]
     Active Substance: DIPHENHYDRAMINE
  5. ALDACTONE [Concomitant]
     Active Substance: SPIRONOLACTONE
  6. TEGRETOL [Concomitant]
     Active Substance: CARBAMAZEPINE
  7. NITROGLYCERIN. [Concomitant]
     Active Substance: NITROGLYCERIN
  8. MAGNESIUM [Concomitant]
     Active Substance: MAGNESIUM
  9. STERILE WATER [Concomitant]
     Active Substance: WATER
  10. PROTONIX [OMEPRAZOLE] [Concomitant]
     Active Substance: OMEPRAZOLE
  11. SYNTHROID [Concomitant]
     Active Substance: LEVOTHYROXINE SODIUM
  12. ASPIRINE [Concomitant]
     Active Substance: ASPIRIN
  13. CALCIUM [Concomitant]
     Active Substance: CALCIUM
  14. SODIUM CHLORIDE. [Concomitant]
     Active Substance: SODIUM CHLORIDE
  15. ISOSORBIDE. [Concomitant]
     Active Substance: ISOSORBIDE
  16. FABRAZYME [Suspect]
     Active Substance: AGALSIDASE BETA
     Indication: LIPIDOSIS
     Dosage: 95 MG, QOW
     Route: 042
     Dates: start: 20200305
  17. ZOFRAN [Concomitant]
     Active Substance: ONDANSETRON HYDROCHLORIDE
  18. FERROUS SULFATE. [Concomitant]
     Active Substance: FERROUS SULFATE
  19. LOSARTAN. [Concomitant]
     Active Substance: LOSARTAN
  20. TOPROL XL [Concomitant]
     Active Substance: METOPROLOL SUCCINATE
  21. TYLENOL ARTHRITIS PAIN [Concomitant]
     Active Substance: ACETAMINOPHEN
  22. ALBUTEROL [SALBUTAMOL] [Concomitant]
     Active Substance: ALBUTEROL
  23. LIPITOR [Concomitant]
     Active Substance: ATORVASTATIN CALCIUM
  24. LOSARTAN. [Concomitant]
     Active Substance: LOSARTAN
  25. EPINEPHRINE. [Concomitant]
     Active Substance: EPINEPHRINE
  26. PANTOPRAZOLE [Concomitant]
     Active Substance: PANTOPRAZOLE
  27. NORVASC [Concomitant]
     Active Substance: AMLODIPINE BESYLATE
  28. MECLIZINE [Concomitant]
     Active Substance: MECLIZINE HYDROCHLORIDE
  29. LASIX [Concomitant]
     Active Substance: FUROSEMIDE
  30. TRAZODONE [Concomitant]
     Active Substance: TRAZODONE HYDROCHLORIDE
  31. PLAVIX [Concomitant]
     Active Substance: CLOPIDOGREL BISULFATE
  32. OMEGA 3?6?9 [FISH OIL] [Concomitant]
     Active Substance: FISH OIL
  33. COQ [Concomitant]
  34. POTASSIUM [Concomitant]
     Active Substance: POTASSIUM

REACTIONS (4)
  - Pulmonary oedema [Unknown]
  - Cardiac failure congestive [Unknown]
  - Weight increased [Unknown]
  - Rotator cuff syndrome [Unknown]

NARRATIVE: CASE EVENT DATE: 2021
